FAERS Safety Report 4725734-0 (Version None)
Quarter: 2005Q3

REPORT INFORMATION
  Report Type: 
  Country: None (occurrence: None)
  Receive Date: 20050722
  Receipt Date: 20050722
  Transmission Date: 20060218
  Serious: Yes (Hospitalization, Disabling)
  Sender: FDA-Public Use
  Company Number: None

PATIENT
  Age: 62 Year
  Sex: Male
  Weight: 81 kg

DRUGS (3)
  1. NOREPINEPHRINE 4 MG/ML  ABBOTT PHARMACEUTICALS [Suspect]
     Indication: HYPOTENSION
     Dosage: TITRATION INTRAVENOUS
     Route: 042
     Dates: start: 20050315, end: 20050324
  2. NOREPINEPHRINE 4 MG/ML  ABBOTT PHARMACEUTICALS [Suspect]
     Indication: SEPSIS
     Dosage: TITRATION INTRAVENOUS
     Route: 042
     Dates: start: 20050315, end: 20050324
  3. DEXTROSE 5% [Suspect]
     Dosage: INTRAVENOUS
     Route: 042
     Dates: start: 20050315, end: 20050324

REACTIONS (2)
  - EXTREMITY NECROSIS [None]
  - LEG AMPUTATION [None]
